FAERS Safety Report 6638939-9 (Version None)
Quarter: 2010Q1

REPORT INFORMATION
  Report Type: 
  Country: None (occurrence: None)
  Receive Date: 20100317
  Receipt Date: 20100312
  Transmission Date: 20100710
  Serious: Yes (Death)
  Sender: FDA-Public Use
  Company Number: PHEH2010US01629

PATIENT
  Sex: Male

DRUGS (3)
  1. TOBI [Suspect]
     Indication: BRONCHIECTASIS
     Dosage: 300 MG, BID
     Dates: start: 20090311, end: 20090611
  2. TEGRETOL [Concomitant]
     Route: 048
  3. AZULFIDINE [Concomitant]
     Route: 048

REACTIONS (1)
  - BRAIN STEM HAEMORRHAGE [None]
